FAERS Safety Report 15313402 (Version 3)
Quarter: 2018Q4

REPORT INFORMATION
  Report Type: Report from Study
  Country: None (occurrence: US)
  Receive Date: 20180823
  Receipt Date: 20181009
  Transmission Date: 20190204
  Serious: Yes (Hospitalization, Other)
  Sender: FDA-Public Use
  Company Number: US-ABBVIE-18K-163-2445500-00

PATIENT
  Sex: Female
  Weight: 79.9 kg

DRUGS (2)
  1. HUMIRA [Suspect]
     Active Substance: ADALIMUMAB
     Route: 058
     Dates: end: 2018
  2. HUMIRA [Suspect]
     Active Substance: ADALIMUMAB
     Indication: RHEUMATOID ARTHRITIS
     Route: 058
     Dates: start: 201701

REACTIONS (13)
  - Heart injury [Unknown]
  - Upper respiratory tract infection [Unknown]
  - Lung infection [Unknown]
  - Cardiomyopathy [Unknown]
  - Chronic obstructive pulmonary disease [Unknown]
  - Nasopharyngitis [Unknown]
  - Immunodeficiency [Unknown]
  - Traumatic lung injury [Unknown]
  - Rheumatoid arthritis [Unknown]
  - Infection [Unknown]
  - Heart rate increased [Unknown]
  - Pneumonia [Recovering/Resolving]
  - Sepsis [Unknown]

NARRATIVE: CASE EVENT DATE: 2018
